FAERS Safety Report 4602360-5 (Version None)
Quarter: 2005Q1

REPORT INFORMATION
  Report Type: 
  Country: None (occurrence: None)
  Receive Date: 20050307
  Receipt Date: 20050221
  Transmission Date: 20050727
  Serious: Yes (Hospitalization)
  Sender: FDA-Public Use
  Company Number: 2005036565

PATIENT
  Sex: Female
  Weight: 86.1834 kg

DRUGS (5)
  1. BEXTRA [Suspect]
     Indication: EXOSTOSIS
     Dosage: 10 MG, (10 MG, 1 IN 1 D), ORAL
     Route: 048
     Dates: start: 20000101, end: 20041101
  2. PROPRANOLOL [Concomitant]
  3. LOSARTAN POTASSIUM (LOSATAN POTASSIUM) [Concomitant]
  4. SIMVASTATIN [Concomitant]
  5. TAMOXIFEN (TAMOXIFEN) [Concomitant]

REACTIONS (3)
  - ARTHRITIS [None]
  - BREAST CANCER FEMALE [None]
  - PAIN [None]
